FAERS Safety Report 24288068 (Version 8)
Quarter: 2025Q1

REPORT INFORMATION
  Report Type: Report from Study
  Country: CA (occurrence: CA)
  Receive Date: 20240905
  Receipt Date: 20250313
  Transmission Date: 20250409
  Serious: Yes (Life-Threatening, Hospitalization, Other)
  Sender: HLS THERAPEUTICS
  Company Number: CA-HLS-202402140

PATIENT
  Age: 65 Year
  Sex: Female

DRUGS (3)
  1. CLOZARIL [Suspect]
     Active Substance: CLOZAPINE
     Indication: Schizophrenia
     Route: 048
     Dates: start: 20240718, end: 20240822
  2. CLOZARIL [Suspect]
     Active Substance: CLOZAPINE
     Indication: Schizophrenia
     Route: 048
  3. CLOZARIL [Suspect]
     Active Substance: CLOZAPINE
     Indication: Schizophrenia
     Route: 048
     Dates: end: 20250204

REACTIONS (18)
  - Base excess increased [Recovered/Resolved]
  - Blood bicarbonate increased [Recovered/Resolved]
  - Blood calcium decreased [Unknown]
  - Cystitis [Unknown]
  - Blood glucose increased [Unknown]
  - Haematocrit decreased [Unknown]
  - Haemoglobin decreased [Unknown]
  - Coma [Recovered/Resolved]
  - Lymphocyte count increased [Recovered/Resolved]
  - Mean platelet volume decreased [Recovered/Resolved]
  - Multiple sclerosis [Unknown]
  - Neutrophil count decreased [Unknown]
  - Protein total decreased [Unknown]
  - Red blood cell count decreased [Unknown]
  - Accidental overdose [Recovered/Resolved]
  - General physical health deterioration [Recovering/Resolving]
  - Blood pressure decreased [Unknown]
  - Blood sodium decreased [Unknown]

NARRATIVE: CASE EVENT DATE: 20240824
